FAERS Safety Report 6530418 (Version 1)
Quarter: 2020Q3

REPORT INFORMATION
  Report Type: Report from Study
  Country: DO (occurrence: DO)
  Receive Date: 20080118
  Receipt Date: 20080118
  Transmission Date: 20201105
  Serious: Yes (Hospitalization)
  Sender: FDA-Public Use
  Company Number: DO-ROCHE-540882

PATIENT
  Age: 78 Year
  Sex: Female

DRUGS (2)
  1. IBANDRONIC ACID. [Suspect]
     Active Substance: IBANDRONIC ACID
     Indication: OSTEOPOROSIS
     Route: 048
     Dates: start: 20070108, end: 20070708
  2. IBANDRONIC ACID. [Suspect]
     Active Substance: IBANDRONIC ACID
     Route: 048
     Dates: start: 20071108, end: 20071208

REACTIONS (2)
  - Renal disorder [Recovering/Resolving]
  - Blood pressure increased [Recovering/Resolving]
